FAERS Safety Report 24686911 (Version 1)
Quarter: 2024Q4

REPORT INFORMATION
  Report Type: Spontaneous
  Country: FR (occurrence: FR)
  Receive Date: 20241202
  Receipt Date: 20241202
  Transmission Date: 20250115
  Serious: Yes (Other)
  Sender: FRESENIUS KABI
  Company Number: None

PATIENT
  Age: 21 Year
  Sex: Male

DRUGS (11)
  1. ACETAMINOPHEN [Suspect]
     Active Substance: ACETAMINOPHEN
     Indication: Pain
     Route: 042
     Dates: start: 20240921, end: 20240923
  2. ACETAMINOPHEN [Suspect]
     Active Substance: ACETAMINOPHEN
     Dosage: ROUTE OF ADMIN: ORAL
     Dates: start: 20240923, end: 20240925
  3. KETOPROFEN [Suspect]
     Active Substance: KETOPROFEN
     Indication: Pain
     Route: 048
     Dates: start: 20240921, end: 20240924
  4. MORPHINE [Suspect]
     Active Substance: MORPHINE
     Indication: Pain
     Route: 042
     Dates: start: 20240921, end: 20240921
  5. MORPHINE [Suspect]
     Active Substance: MORPHINE
     Route: 048
     Dates: start: 20240924, end: 20240926
  6. NEFOPAM HYDROCHLORIDE [Suspect]
     Active Substance: NEFOPAM HYDROCHLORIDE
     Indication: Pain
     Route: 042
     Dates: start: 20240921, end: 20240925
  7. POLYETHYLENE GLYCOLS [Suspect]
     Active Substance: POLYETHYLENE GLYCOLS
     Indication: Pain
     Route: 048
     Dates: start: 20240921, end: 20240924
  8. 1,3,5-TRIMETHOXYBENZENE [Suspect]
     Active Substance: 1,3,5-TRIMETHOXYBENZENE
     Indication: Pain
     Route: 048
     Dates: start: 20240923, end: 20240925
  9. ONDANSETRON [Concomitant]
     Active Substance: ONDANSETRON
     Indication: Pain
     Route: 042
     Dates: start: 20240921
  10. DROPERIDOL [Concomitant]
     Active Substance: DROPERIDOL
     Indication: Product used for unknown indication
     Route: 042
     Dates: start: 20240921
  11. ENOXAPARIN SODIUM [Concomitant]
     Active Substance: ENOXAPARIN SODIUM
     Indication: Product used for unknown indication

REACTIONS (1)
  - Hepatic cytolysis [Recovered/Resolved]

NARRATIVE: CASE EVENT DATE: 20240925
